FAERS Safety Report 11985602 (Version 1)
Quarter: 2016Q1

REPORT INFORMATION
  Report Type: Spontaneous
  Country: DE (occurrence: DE)
  Receive Date: 20160201
  Receipt Date: 20160201
  Transmission Date: 20160526
  Serious: Yes (Hospitalization, Other)
  Sender: FDA-Public Use
  Company Number: DE-ASTRAZENECA-2016SE09179

PATIENT
  Age: 16 Year
  Sex: Female
  Weight: 68 kg

DRUGS (1)
  1. SEROQUEL [Suspect]
     Active Substance: QUETIAPINE FUMARATE
     Indication: MOOD SWINGS
     Route: 048
     Dates: start: 20151127

REACTIONS (8)
  - Sleep disorder [Unknown]
  - Emotional poverty [Unknown]
  - Aggression [Unknown]
  - Weight increased [Unknown]
  - Memory impairment [Unknown]
  - Fatigue [Unknown]
  - Sluggishness [Unknown]
  - Hallucination [Unknown]

NARRATIVE: CASE EVENT DATE: 20151127
